FAERS Safety Report 9628670 (Version 3)
Quarter: 2014Q1

REPORT INFORMATION
  Report Type: Spontaneous
  Country: US (occurrence: US)
  Receive Date: 20131017
  Receipt Date: 20140103
  Transmission Date: 20141002
  Serious: Yes (Hospitalization)
  Sender: FDA-Public Use
  Company Number: US-BAYER-2013-121729

PATIENT
  Age: 19 Year
  Sex: Female
  Weight: 63.49 kg

DRUGS (3)
  1. MIRENA [Suspect]
     Indication: CONTRACEPTION
     Dosage: 20 MCG/24HR, CONT
     Route: 015
     Dates: start: 20110302, end: 20111208
  2. IBUPROFEN [Concomitant]
  3. DOXYCYCLINE [Concomitant]

REACTIONS (18)
  - Embedded device [None]
  - Device dislocation [None]
  - Adverse drug reaction [None]
  - Device breakage [None]
  - Device difficult to use [None]
  - Complication of device removal [None]
  - Incorrect dose administered by device [None]
  - Pregnancy with contraceptive device [None]
  - Dysfunctional uterine bleeding [None]
  - Menstruation irregular [None]
  - Metrorrhagia [None]
  - Infertility female [None]
  - Emotional distress [None]
  - Injury [None]
  - Abdominal pain [None]
  - Anxiety [None]
  - Depression [None]
  - Device issue [None]
